FAERS Safety Report 7443979-6 (Version None)
Quarter: 2011Q2

REPORT INFORMATION
  Report Type: 
  Country: None (occurrence: None)
  Receive Date: 20110429
  Receipt Date: 20110419
  Transmission Date: 20111010
  Serious: No
  Sender: FDA-Public Use
  Company Number: US-BIOGENIDEC-2011BI006754

PATIENT
  Sex: Female

DRUGS (2)
  1. TYSABRI [Suspect]
     Indication: MULTIPLE SCLEROSIS
     Route: 042
     Dates: start: 20110121, end: 20110317
  2. ANTIVIRALS (NOS) [Concomitant]
     Indication: PRODUCT USED FOR UNKNOWN INDICATION

REACTIONS (10)
  - URINARY INCONTINENCE [None]
  - RASH [None]
  - GAIT DISTURBANCE [None]
  - BALANCE DISORDER [None]
  - INSOMNIA [None]
  - OPTIC NEURITIS [None]
  - INFECTION [None]
  - EYE PAIN [None]
  - PAIN [None]
  - PERTUSSIS [None]
